FAERS Safety Report 25302019 (Version 1)
Quarter: 2025Q2

REPORT INFORMATION
  Report Type: Report from Study
  Country: US (occurrence: US)
  Receive Date: 20250512
  Receipt Date: 20250512
  Transmission Date: 20250716
  Serious: Yes (Hospitalization)
  Sender: EISAI
  Company Number: US-Eisai-EC-2025-188990

PATIENT
  Age: 78 Year
  Sex: Female
  Weight: 65.7 kg

DRUGS (3)
  1. LENVIMA [Suspect]
     Active Substance: LENVATINIB
     Indication: Renal cancer
     Dates: start: 20220824, end: 202301
  2. LENVIMA [Suspect]
     Active Substance: LENVATINIB
     Dates: start: 202406
  3. LENVIMA [Suspect]
     Active Substance: LENVATINIB

REACTIONS (2)
  - Rash pruritic [Unknown]
  - Cardiac valve disease [Unknown]

NARRATIVE: CASE EVENT DATE: 20220101
